FAERS Safety Report 18264026 (Version 1)
Quarter: 2020Q3

REPORT INFORMATION
  Report Type: Report from Study
  Country: None (occurrence: US)
  Receive Date: 20200914
  Receipt Date: 20200914
  Transmission Date: 20201103
  Serious: Yes (Hospitalization, Other)
  Sender: FDA-Public Use
  Company Number: US-ABBVIE-19K-163-3131851-00

PATIENT
  Age: 74 Year
  Sex: Male

DRUGS (8)
  1. IMBRUVICA [Suspect]
     Active Substance: IBRUTINIB
     Dosage: QD
     Route: 048
     Dates: start: 20180313, end: 20180409
  2. IMBRUVICA [Suspect]
     Active Substance: IBRUTINIB
     Dosage: QD
     Route: 048
     Dates: start: 20180410, end: 20181221
  3. IMBRUVICA [Suspect]
     Active Substance: IBRUTINIB
     Dosage: QD
     Route: 048
     Dates: start: 20181222
  4. IMBRUVICA [Suspect]
     Active Substance: IBRUTINIB
     Indication: CHRONIC LYMPHOCYTIC LEUKAEMIA
     Dosage: 140 MG, UNK
     Route: 048
     Dates: start: 20180410
  5. IMBRUVICA [Suspect]
     Active Substance: IBRUTINIB
     Indication: CHRONIC LYMPHOCYTIC LEUKAEMIA
     Route: 048
     Dates: end: 20180312
  6. LOVASTATIN. [Concomitant]
     Active Substance: LOVASTATIN
     Indication: PRODUCT USED FOR UNKNOWN INDICATION
  7. ZYRTEC [Concomitant]
     Active Substance: CETIRIZINE HYDROCHLORIDE
     Indication: PRODUCT USED FOR UNKNOWN INDICATION
  8. PLAVIX [Concomitant]
     Active Substance: CLOPIDOGREL BISULFATE
     Indication: PRODUCT USED FOR UNKNOWN INDICATION

REACTIONS (9)
  - Plasma cell myeloma [Unknown]
  - Neoplasm malignant [Unknown]
  - Prostate cancer [Unknown]
  - Plasma cell myeloma [Unknown]
  - Incorrect dose administered [Unknown]
  - Cardiac disorder [Unknown]
  - Intentional product use issue [Unknown]
  - Seasonal allergy [Unknown]
  - Facial operation [Unknown]

NARRATIVE: CASE EVENT DATE: 20180410
